FAERS Safety Report 5359005-9 (Version None)
Quarter: 2007Q2

REPORT INFORMATION
  Report Type: 
  Country: None (occurrence: None)
  Receive Date: 20070601
  Receipt Date: 20070310
  Transmission Date: 20071010
  Serious: No
  Sender: FDA-Public Use
  Company Number: PHEH2007US02963

PATIENT
  Sex: Male

DRUGS (1)
  1. ENABLEX [Suspect]
     Dosage: 7.5 MG, QD, ORAL
     Route: 048

REACTIONS (1)
  - BLOOD GLUCOSE INCREASED [None]
